FAERS Safety Report 10251370 (Version 1)
Quarter: 2014Q2

REPORT INFORMATION
  Report Type: Spontaneous
  Country: US (occurrence: US)
  Receive Date: 20140622
  Receipt Date: 20140622
  Transmission Date: 20141212
  Serious: Yes (Other)
  Sender: FDA-Public Use
  Company Number: US-ABBVIE-14P-163-1246458-00

PATIENT
  Age: 52 Year
  Sex: Female
  Weight: 59.93 kg

DRUGS (4)
  1. HUMIRA [Suspect]
     Indication: CROHN^S DISEASE
     Dosage: LOADING DOSE
     Dates: start: 2013, end: 2013
  2. HUMIRA [Suspect]
     Dosage: SECOND DOSE
     Dates: start: 2013, end: 2013
  3. HUMIRA [Suspect]
     Dates: start: 2013
  4. ACCUPRIL [Concomitant]
     Indication: HYPERTENSION

REACTIONS (4)
  - Scar [Recovering/Resolving]
  - Nerve injury [Recovering/Resolving]
  - Tendon injury [Recovering/Resolving]
  - Joint stiffness [Recovering/Resolving]
